FAERS Safety Report 7387673-9 (Version None)
Quarter: 2011Q1

REPORT INFORMATION
  Report Type: 
  Country: None (occurrence: None)
  Receive Date: 20110331
  Receipt Date: 20110321
  Transmission Date: 20110831
  Serious: Yes (Other)
  Sender: FDA-Public Use
  Company Number: US-BAXTER-2011BH007398

PATIENT
  Age: 18 Year
  Sex: Male
  Weight: 81 kg

DRUGS (11)
  1. ISOFLURANE [Suspect]
     Indication: MAINTENANCE OF ANAESTHESIA
     Route: 055
  2. LIDOCAINE [Concomitant]
     Indication: INDUCTION OF ANAESTHESIA
     Route: 042
  3. SEVOFLURANE [Suspect]
     Indication: GENERAL ANAESTHESIA
     Route: 055
  4. FENTANYL [Concomitant]
     Indication: INDUCTION OF ANAESTHESIA
     Route: 042
  5. NEO-SYNEPHRINOL [Suspect]
     Indication: HYPOTENSION
     Route: 042
  6. PROPOFOL [Concomitant]
     Indication: INDUCTION OF ANAESTHESIA
     Route: 042
  7. MORPHINE [Concomitant]
     Indication: ANALGESIC THERAPY
     Route: 065
  8. LACTATED RINGER'S [Concomitant]
     Indication: PRODUCT USED FOR UNKNOWN INDICATION
     Route: 042
  9. ROCURONIUM [Concomitant]
     Indication: INDUCTION OF ANAESTHESIA
     Route: 042
  10. NEO-SYNEPHRINOL [Suspect]
     Route: 042
  11. PIPERACILLIN AND TAZOBACTAM [Concomitant]
     Indication: PRODUCT USED FOR UNKNOWN INDICATION
     Route: 042

REACTIONS (6)
  - BLOOD PRESSURE DECREASED [None]
  - POLYURIA [None]
  - TACHYCARDIA [None]
  - OPERATIVE HAEMORRHAGE [None]
  - HAEMOGLOBIN DECREASED [None]
  - NEPHROGENIC DIABETES INSIPIDUS [None]
